FAERS Safety Report 17048479 (Version 1)
Quarter: 2019Q4

REPORT INFORMATION
  Report Type: Spontaneous
  Country: US (occurrence: US)
  Receive Date: 20191119
  Receipt Date: 20191119
  Transmission Date: 20200122
  Serious: No
  Sender: FDA-Public Use
  Company Number: US-PFIZER INC-2019497166

PATIENT
  Age: 79 Year
  Sex: Female

DRUGS (13)
  1. CRESTOR [Suspect]
     Active Substance: ROSUVASTATIN CALCIUM
     Dosage: UNK
  2. FISH OIL [Concomitant]
     Active Substance: FISH OIL
  3. LISINOPRIL. [Concomitant]
     Active Substance: LISINOPRIL
  4. ESCITALOPRAM [Concomitant]
     Active Substance: ESCITALOPRAM OXALATE
  5. TORSEMIDE. [Concomitant]
     Active Substance: TORSEMIDE
  6. ZOCOR [Suspect]
     Active Substance: SIMVASTATIN
     Dosage: UNK
  7. DOXAZOSIN [Concomitant]
     Active Substance: DOXAZOSIN MESYLATE
  8. EZETIMIBE. [Concomitant]
     Active Substance: EZETIMIBE
  9. LIPITOR [Suspect]
     Active Substance: ATORVASTATIN CALCIUM
     Dosage: UNK
  10. METOPROLOL SUCCINATE. [Concomitant]
     Active Substance: METOPROLOL SUCCINATE
  11. OMEPRAZOLE. [Concomitant]
     Active Substance: OMEPRAZOLE
  12. ASPIRIN [ACETYLSALICYLIC ACID] [Concomitant]
     Active Substance: ASPIRIN
  13. VITAMINS NOS [Concomitant]
     Active Substance: VITAMINS

REACTIONS (2)
  - Drug hypersensitivity [Unknown]
  - Pruritus [Unknown]
